FAERS Safety Report 21006631 (Version 1)
Quarter: 2022Q2

REPORT INFORMATION
  Report Type: Other
  Country: ES (occurrence: ES)
  Receive Date: 20220625
  Receipt Date: 20220625
  Transmission Date: 20220721
  Serious: Yes (Other)
  Sender: FDA-Public Use
  Company Number: ES-CELLTRION INC.-2022ES009637

PATIENT

DRUGS (3)
  1. RITUXIMAB [Suspect]
     Active Substance: RITUXIMAB
     Indication: Mantle cell lymphoma
     Dosage: WEEKLY (4 DOSES)
     Route: 065
  2. IMBRUVICA [Suspect]
     Active Substance: IBRUTINIB
     Indication: Mantle cell lymphoma
     Dosage: 280 MG
     Route: 048
  3. IMBRUVICA [Suspect]
     Active Substance: IBRUTINIB
     Dosage: 420 MG
     Route: 048

REACTIONS (2)
  - Mantle cell lymphoma [Unknown]
  - Off label use [Unknown]
